FAERS Safety Report 24141481 (Version 1)
Quarter: 2024Q3

REPORT INFORMATION
  Report Type: Spontaneous
  Country: IL (occurrence: IL)
  Receive Date: 20240726
  Receipt Date: 20240726
  Transmission Date: 20241016
  Serious: Yes (Other)
  Sender: RANBAXY
  Company Number: IL-SUN PHARMACEUTICAL INDUSTRIES LTD-2024R1-458899

PATIENT
  Age: 74 Year
  Sex: Male

DRUGS (2)
  1. BICALUTAMIDE [Suspect]
     Active Substance: BICALUTAMIDE
     Indication: Metastatic carcinoid tumour
     Dosage: 150 MILLIGRAM, DAILY
     Route: 065
  2. BICALUTAMIDE [Suspect]
     Active Substance: BICALUTAMIDE
     Dosage: 100 MILLIGRAM, DAILY
     Route: 065

REACTIONS (2)
  - Prostate cancer metastatic [Unknown]
  - Therapeutic response decreased [Unknown]
